FAERS Safety Report 24231711 (Version 3)
Quarter: 2024Q4

REPORT INFORMATION
  Report Type: Report from Study
  Country: US (occurrence: US)
  Receive Date: 20240821
  Receipt Date: 20241017
  Transmission Date: 20250115
  Serious: No
  Sender: ALEXION PHARMACEUTICALS
  Company Number: 2024A186089

PATIENT

DRUGS (6)
  1. TEZSPIRE [Suspect]
     Active Substance: TEZEPELUMAB-EKKO
     Indication: Asthma
     Dosage: 210 MILLIGRAM, UNK, FREQUENCY: Q4WK
  2. TEZSPIRE [Suspect]
     Active Substance: TEZEPELUMAB-EKKO
     Dosage: 210 MILLIGRAM, UNK, FREQUENCY: Q4WK
  3. TEZSPIRE [Suspect]
     Active Substance: TEZEPELUMAB-EKKO
     Dosage: 210 MILLIGRAM, UNK, FREQUENCY: Q4WK
  4. TEZSPIRE [Suspect]
     Active Substance: TEZEPELUMAB-EKKO
     Dosage: 210 MILLIGRAM, UNK, FREQUENCY: Q4WK
  5. OMEPRAZOLE [Suspect]
     Active Substance: OMEPRAZOLE
  6. OMEPRAZOLE [Suspect]
     Active Substance: OMEPRAZOLE

REACTIONS (8)
  - Cystic lung disease [Unknown]
  - Cough [Unknown]
  - Dyspnoea [Unknown]
  - Emphysema [Unknown]
  - Atelectasis [Unknown]
  - Insomnia [Unknown]
  - Ill-defined disorder [Unknown]
  - Drug ineffective [Unknown]
